FAERS Safety Report 24292193 (Version 1)
Quarter: 2024Q3

REPORT INFORMATION
  Report Type: Spontaneous
  Country: US (occurrence: None)
  Receive Date: 20240906
  Receipt Date: 20240906
  Transmission Date: 20241016
  Serious: No
  Sender: DOMPE FARMACEUTICI
  Company Number: US-FARMAPROD-202307-2089

PATIENT
  Sex: Female

DRUGS (5)
  1. OXERVATE [Suspect]
     Active Substance: CENEGERMIN-BKBJ
     Indication: Neurotrophic keratopathy
     Route: 047
     Dates: start: 20230629
  2. REFRESH CLASSIC [Concomitant]
     Active Substance: POLYVINYL ALCOHOL\POVIDONE
  3. LATANOPROST [Concomitant]
     Active Substance: LATANOPROST
  4. TIMOLOL MALEATE [Concomitant]
     Active Substance: TIMOLOL MALEATE
  5. REGENER EYES LUBRICATING [Concomitant]

REACTIONS (2)
  - Eye pain [Unknown]
  - Vision blurred [Unknown]
